FAERS Safety Report 8531499-7 (Version None)
Quarter: 2012Q2

REPORT INFORMATION
  Report Type: 
  Country: None (occurrence: None)
  Receive Date: 20120412
  Receipt Date: 20090720
  Transmission Date: 20120825
  Serious: Yes (Hospitalization)
  Sender: FDA-Public Use
  Company Number: PHEH2009US08137

PATIENT
  Age: 55 Year
  Sex: Male

DRUGS (3)
  1. LIPITOR [Concomitant]
  2. LOPID [Concomitant]
  3. TYZEKA [Suspect]
     Indication: HEPATITIS B
     Dosage: 600 MG, QW4, ORAL
     Route: 048
     Dates: start: 20080701

REACTIONS (3)
  - BLOOD CREATINE PHOSPHOKINASE INCREASED [None]
  - LIPIDS INCREASED [None]
  - MYALGIA [None]
